FAERS Safety Report 11232189 (Version 1)
Quarter: 2015Q3

REPORT INFORMATION
  Report Type: Spontaneous
  Country: US (occurrence: US)
  Receive Date: 20150701
  Receipt Date: 20150701
  Transmission Date: 20151125
  Serious: No
  Sender: FDA-Public Use
  Company Number: US-TEVA-497181USA

PATIENT
  Sex: Male

DRUGS (5)
  1. CITALOPRAM [Concomitant]
     Active Substance: CITALOPRAM HYDROBROMIDE
  2. BUPROPION. [Interacting]
     Active Substance: BUPROPION
  3. ESCITALOPRAM [Concomitant]
     Active Substance: ESCITALOPRAM OXALATE
  4. SURMONTIL [Suspect]
     Active Substance: TRIMIPRAMINE MALEATE
     Indication: SLEEP DISORDER
  5. VORTIOXETINE [Concomitant]
     Active Substance: VORTIOXETINE

REACTIONS (3)
  - Drug interaction [Unknown]
  - Drug ineffective [Unknown]
  - Tremor [Unknown]
